FAERS Safety Report 7245038-4 (Version None)
Quarter: 2011Q1

REPORT INFORMATION
  Report Type: 
  Country: None (occurrence: None)
  Receive Date: 20110126
  Receipt Date: 20110120
  Transmission Date: 20110831
  Serious: Yes (Other)
  Sender: FDA-Public Use
  Company Number: CA-US-EMD SERONO, INC.-7037468

PATIENT
  Sex: Male

DRUGS (6)
  1. METFORMIN HCL [Concomitant]
  2. ELTROXIN [Concomitant]
  3. GLYBURIDE [Concomitant]
  4. REBIF [Suspect]
     Indication: MULTIPLE SCLEROSIS
     Dates: start: 20101223
  5. NEXXIUM [Concomitant]
  6. ANTIDEPRESSANT [Concomitant]

REACTIONS (6)
  - RECTAL HAEMORRHAGE [None]
  - CHILLS [None]
  - PYREXIA [None]
  - VOMITING [None]
  - HEADACHE [None]
  - CHEST PAIN [None]
